FAERS Safety Report 8156593 (Version 4)
Quarter: 2014Q2

REPORT INFORMATION
  Report Type: Spontaneous
  Country: US (occurrence: US)
  Receive Date: 20110926
  Receipt Date: 20140602
  Transmission Date: 20141212
  Serious: Yes (Other)
  Sender: FDA-Public Use
  Company Number: US-BAYER-2011-087317

PATIENT
  Age: 35 Year
  Sex: Female
  Weight: 113 kg

DRUGS (2)
  1. YASMIN [Suspect]
     Indication: CONTRACEPTION
     Dosage: UNK
     Dates: start: 200602, end: 2007
  2. NAPROXEN [Concomitant]
     Indication: PAIN IN EXTREMITY
     Dosage: UNK UNK, QD
     Dates: start: 2006

REACTIONS (5)
  - Thrombophlebitis [None]
  - Pain [None]
  - Pain in extremity [None]
  - Emotional distress [None]
  - Thrombosed varicose vein [None]
